FAERS Safety Report 20985133 (Version 1)
Quarter: 2022Q2

REPORT INFORMATION
  Report Type: Spontaneous
  Country: US (occurrence: None)
  Receive Date: 20220621
  Receipt Date: 20220621
  Transmission Date: 20220721
  Serious: No
  Sender: FDA-Public Use
  Company Number: US-ROCHE-3035466

PATIENT
  Age: 57 Year
  Sex: Female

DRUGS (3)
  1. CAPECITABINE [Suspect]
     Active Substance: CAPECITABINE
     Indication: Product used for unknown indication
     Route: 048
  2. TUKYSA [Suspect]
     Active Substance: TUCATINIB
     Indication: Breast cancer female
     Dosage: TUKYSA WAS REDUCED TO 300 MG IN AM AND 150 MG IN PM.
     Route: 065
  3. OMNICEF [Concomitant]
     Active Substance: CEFDINIR

REACTIONS (1)
  - Blood bilirubin increased [Unknown]
